FAERS Safety Report 19582978 (Version 1)
Quarter: 2021Q3

REPORT INFORMATION
  Report Type: Spontaneous
  Country: US (occurrence: US)
  Receive Date: 20210720
  Receipt Date: 20210720
  Transmission Date: 20211014
  Serious: Yes (Hospitalization)
  Sender: FDA-Public Use
  Company Number: None

PATIENT
  Sex: Female

DRUGS (4)
  1. METFORMIN [Concomitant]
     Active Substance: METFORMIN HYDROCHLORIDE
  2. PIQRAY [Suspect]
     Active Substance: ALPELISIB
     Indication: NEOPLASM MALIGNANT
     Route: 048
     Dates: start: 20210308
  3. BISOPROL FUM [Concomitant]
     Active Substance: BISOPROLOL FUMARATE
  4. VITAMIN D3 [Concomitant]
     Active Substance: CHOLECALCIFEROL

REACTIONS (2)
  - Diabetes mellitus [None]
  - Diarrhoea [None]
